FAERS Safety Report 5412577-8 (Version None)
Quarter: 2007Q3

REPORT INFORMATION
  Report Type: 
  Country: None (occurrence: None)
  Receive Date: 20070809
  Receipt Date: 20070801
  Transmission Date: 20080115
  Serious: No
  Sender: FDA-Public Use
  Company Number: 20073926

PATIENT
  Age: 45 Year
  Sex: Male

DRUGS (5)
  1. LIORESAL [Suspect]
     Indication: MUSCLE SPASTICITY
     Dosage: 250 MG, DAILY, INTRATHECAL
     Route: 037
  2. PAROXETINE HCL [Concomitant]
  3. FLAGYL [Concomitant]
  4. POTASSIUM CHLORIDE [Concomitant]
  5. ACETAMINOPHEN [Concomitant]

REACTIONS (3)
  - INJECTION SITE ERYTHEMA [None]
  - INJECTION SITE VESICLES [None]
  - SCAR [None]
